FAERS Safety Report 4415984-5 (Version None)
Quarter: 2004Q3

REPORT INFORMATION
  Report Type: 
  Country: None (occurrence: None)
  Receive Date: 20040802
  Receipt Date: 20040723
  Transmission Date: 20050211
  Serious: Yes (Hospitalization)
  Sender: FDA-Public Use
  Company Number: 2004225135FR

PATIENT
  Age: 27 Year
  Sex: Female
  Weight: 50 kg

DRUGS (3)
  1. XANAX [Suspect]
     Indication: DEPRESSION
     Dosage: 0.5 MG, TID, ORAL
     Route: 048
     Dates: start: 20040529, end: 20040608
  2. CYAMEMAZINE(CYAMEMAZINE) [Suspect]
     Indication: DEPRESSION
     Dosage: 135MG/DAY, ORAL
     Route: 048
     Dates: start: 20040529, end: 20040607
  3. CITALOPRAM [Suspect]
     Indication: DEPRESSION
     Dosage: 20MG/DAY, ORAL
     Route: 048
     Dates: start: 20040529, end: 20040608

REACTIONS (11)
  - C-REACTIVE PROTEIN INCREASED [None]
  - CSF TEST ABNORMAL [None]
  - CYTOLYTIC HEPATITIS [None]
  - HEADACHE [None]
  - HEPATIC STEATOSIS [None]
  - HYPERTHERMIA [None]
  - LIVER DISORDER [None]
  - MUSCULOSKELETAL STIFFNESS [None]
  - NECK PAIN [None]
  - RASH PAPULAR [None]
  - SKIN LESION [None]
